FAERS Safety Report 25516200 (Version 1)
Quarter: 2025Q3

REPORT INFORMATION
  Report Type: Spontaneous
  Country: US (occurrence: US)
  Receive Date: 20250704
  Receipt Date: 20250704
  Transmission Date: 20251020
  Serious: No
  Sender: RADIUS PHARM
  Company Number: US-RADIUS HEALTH INC.-2025US001614

PATIENT
  Age: 64 Year
  Sex: Female

DRUGS (1)
  1. TYMLOS [Suspect]
     Active Substance: ABALOPARATIDE
     Indication: Osteoporosis
     Route: 058
     Dates: start: 202501

REACTIONS (8)
  - Insomnia [Unknown]
  - Weight decreased [Unknown]
  - Nausea [Unknown]
  - Feeding disorder [Unknown]
  - Loss of personal independence in daily activities [Not Recovered/Not Resolved]
  - Migraine [Unknown]
  - Dry skin [Unknown]
  - Decreased appetite [Unknown]

NARRATIVE: CASE EVENT DATE: 20250101
